FAERS Safety Report 6993254-9 (Version None)
Quarter: 2010Q3

REPORT INFORMATION
  Report Type: 
  Country: None (occurrence: None)
  Receive Date: 20100917
  Receipt Date: 20100209
  Transmission Date: 20110219
  Serious: Yes (Other)
  Sender: FDA-Public Use
  Company Number: US-ASTRAZENECA-2010SE05757

PATIENT
  Sex: Female
  Weight: 97.5 kg

DRUGS (9)
  1. SEROQUEL [Suspect]
     Indication: BIPOLAR II DISORDER
     Route: 048
  2. SEROQUEL [Suspect]
     Route: 048
     Dates: start: 20090901
  3. SEROQUEL [Suspect]
     Route: 048
  4. PROPRANOLOL [Concomitant]
     Indication: HYPERTENSION
  5. MERAPEX [Concomitant]
     Indication: RESTLESS LEGS SYNDROME
  6. CLONAZEPAM [Concomitant]
     Indication: RESTLESS LEGS SYNDROME
  7. CALCIUM [Concomitant]
  8. FISH OIL [Concomitant]
  9. VITAMIN B-12 [Concomitant]

REACTIONS (8)
  - ANXIETY [None]
  - BLOOD CHOLESTEROL INCREASED [None]
  - DEPRESSION [None]
  - DRY MOUTH [None]
  - INCREASED APPETITE [None]
  - INSOMNIA [None]
  - SUICIDAL IDEATION [None]
  - WEIGHT INCREASED [None]
